FAERS Safety Report 14410021 (Version 2)
Quarter: 2018Q1

REPORT INFORMATION
  Report Type: Spontaneous
  Country: US (occurrence: US)
  Receive Date: 20180119
  Receipt Date: 20180205
  Transmission Date: 20180509
  Serious: Yes (Other)
  Sender: FDA-Public Use
  Company Number: US-PFIZER INC-2017508747

PATIENT
  Age: 77 Year
  Sex: Male

DRUGS (14)
  1. LYRICA [Suspect]
     Active Substance: PREGABALIN
     Dosage: UNK
  2. LYRICA [Suspect]
     Active Substance: PREGABALIN
     Dosage: 1 DF, 1X/DAY, (AT NIGHT AT BEDTIME)
  3. GLUCOSAMINE + CHONDROITIN PLUS [Concomitant]
     Dosage: 1200 MG, 2X/DAY
  4. MAGNESIUM [Concomitant]
     Active Substance: MAGNESIUM
     Dosage: 750 MG, DAILY
     Route: 048
  5. HYDROCODONE AND ACETAMINOPHEN [Concomitant]
     Active Substance: ACETAMINOPHEN\HYDROCODONE
     Dosage: 10/325MG [HYDROCODONE: 10 MG/ACETAMINOPHEN: 325 MG], TAKE 1 TABLET BY UP TO 5 TIMES DAILY
  6. MIRALAX [Concomitant]
     Active Substance: POLYETHYLENE GLYCOL 3350
     Dosage: 17 G, DAILY
     Route: 048
  7. NOVOLIN R [Concomitant]
     Active Substance: INSULIN HUMAN
     Dosage: 30 IU, DAILY
     Route: 051
  8. MORPHINE [Concomitant]
     Active Substance: MORPHINE
     Dosage: 15 MG, 2X/DAY (TAKE 1 TABLET EVERY 12 HOURS)
     Route: 048
  9. LYRICA [Suspect]
     Active Substance: PREGABALIN
     Dosage: 1 DF, 1X/DAY, (IN THE MORNING)
  10. MORPHINE [Concomitant]
     Active Substance: MORPHINE
     Dosage: 30 MG, 3X/DAY (TAKE 1 TABLET EVERY 8 HOURS)
     Route: 048
  11. LEVEMIR [Concomitant]
     Active Substance: INSULIN DETEMIR
     Dosage: 86 IU, 1X/DAY
     Route: 058
  12. LYRICA [Suspect]
     Active Substance: PREGABALIN
     Indication: DIABETES MELLITUS
     Dosage: 50 MG, 3X/DAY
     Route: 048
  13. CARISOPRODOL. [Concomitant]
     Active Substance: CARISOPRODOL
     Dosage: 350 MG, 3X/DAY
     Route: 048
  14. TRIAMCINOLONE ACETONIDE. [Concomitant]
     Active Substance: TRIAMCINOLONE ACETONIDE
     Dosage: UNK UNK, 2X/DAY (APPLY A THIN LAYER TO THE AFFECTED AREAS)
     Route: 061

REACTIONS (8)
  - Product use in unapproved indication [Unknown]
  - Dizziness [Unknown]
  - Drug clearance decreased [Unknown]
  - Loss of consciousness [Unknown]
  - Intentional product misuse [Unknown]
  - Dry mouth [Unknown]
  - Vision blurred [Unknown]
  - Fibromyalgia [Unknown]
